FAERS Safety Report 11254606 (Version 1)
Quarter: 2015Q3

REPORT INFORMATION
  Report Type: Report from Study
  Country: BR (occurrence: BR)
  Receive Date: 20150709
  Receipt Date: 20150709
  Transmission Date: 20151125
  Serious: Yes (Other)
  Sender: FDA-Public Use
  Company Number: BR-ABBVIE-15K-020-1423324-00

PATIENT
  Age: 27 Year
  Sex: Female

DRUGS (1)
  1. HUMIRA [Suspect]
     Active Substance: ADALIMUMAB
     Indication: ANKYLOSING SPONDYLITIS
     Route: 058
     Dates: start: 20120509, end: 20150605

REACTIONS (11)
  - Osteoarthritis [Recovered/Resolved]
  - Joint effusion [Unknown]
  - Influenza [Recovered/Resolved]
  - Weight increased [Recovered/Resolved]
  - Immune system disorder [Unknown]
  - Pain [Recovering/Resolving]
  - Weight decreased [Recovered/Resolved]
  - Emotional disorder [Recovering/Resolving]
  - Anxiety [Unknown]
  - Body temperature decreased [Unknown]
  - Weight decreased [Recovered/Resolved]

NARRATIVE: CASE EVENT DATE: 201308
